FAERS Safety Report 18565620 (Version 3)
Quarter: 2020Q4

REPORT INFORMATION
  Report Type: Spontaneous
  Country: US (occurrence: US)
  Receive Date: 20201201
  Receipt Date: 20201203
  Transmission Date: 20210114
  Serious: No
  Sender: FDA-Public Use
  Company Number: US-PFIZER INC-2020471501

PATIENT
  Sex: Female

DRUGS (3)
  1. METRONIDAZOLE. [Suspect]
     Active Substance: METRONIDAZOLE
     Dosage: 500 MG, 3X/DAY (HALF AND TAKE TWICE THE FREQUENCY SO STILL GETS THE FULL DOSE IN 24 HOUR PERIOD)
     Route: 048
     Dates: start: 20201120
  2. LEVAQUIN [Suspect]
     Active Substance: LEVOFLOXACIN
     Dosage: UNK
     Dates: start: 202011
  3. CIPRO [Suspect]
     Active Substance: CIPROFLOXACIN HYDROCHLORIDE
     Dosage: 500 MG, 2X/DAY (HALF AND TAKE TWICE THE FREQUENCY SO STILL GETS THE FULL DOSE IN 24 HOUR PERIOD)
     Route: 048
     Dates: start: 20201120, end: 202011

REACTIONS (3)
  - Balance disorder [Recovered/Resolved]
  - Tremor [Not Recovered/Not Resolved]
  - Dizziness [Recovered/Resolved]

NARRATIVE: CASE EVENT DATE: 20201125
